FAERS Safety Report 5343645-7 (Version None)
Quarter: 2007Q2

REPORT INFORMATION
  Report Type: 
  Country: None (occurrence: None)
  Receive Date: 20070531
  Receipt Date: 20070516
  Transmission Date: 20071010
  Serious: Yes (Hospitalization)
  Sender: FDA-Public Use
  Company Number: 2007SP001825

PATIENT
  Age: 76 Year
  Sex: Female
  Weight: 63.05 kg

DRUGS (5)
  1. XOPENEX [Suspect]
     Indication: ASTHMA
     Dosage: SEE IMAGE
     Route: 055
     Dates: start: 19990101, end: 20070403
  2. XOPENEX [Suspect]
     Indication: ASTHMA
     Dosage: SEE IMAGE
     Route: 055
     Dates: start: 20070501, end: 20070514
  3. XOPENEX [Suspect]
     Indication: ASTHMA
     Dosage: SEE IMAGE
     Route: 055
     Dates: start: 20070515
  4. PREDNISONE TAB [Concomitant]
  5. ADVAIR DISKUS 100/50 [Concomitant]

REACTIONS (3)
  - ASTHMA [None]
  - DYSGEUSIA [None]
  - PULMONARY CONGESTION [None]
